FAERS Safety Report 4880352-9 (Version None)
Quarter: 2006Q1

REPORT INFORMATION
  Report Type: 
  Country: None (occurrence: None)
  Receive Date: 20060111
  Receipt Date: 20060111
  Transmission Date: 20060701
  Serious: Yes (Life-Threatening, Hospitalization, Disabling, Other)
  Sender: FDA-Public Use
  Company Number: None

PATIENT
  Age: 49 Year
  Sex: Female
  Weight: 77.1115 kg

DRUGS (1)
  1. AMERGE [Suspect]
     Indication: HEADACHE
     Dosage: 2 ONSET PO
     Route: 048

REACTIONS (1)
  - UNEVALUABLE EVENT [None]
